FAERS Safety Report 4277239-1 (Version None)
Quarter: 2004Q1

REPORT INFORMATION
  Report Type: 
  Country: None (occurrence: None)
  Receive Date: 20040120
  Receipt Date: 20040105
  Transmission Date: 20041129
  Serious: Yes (Hospitalization)
  Sender: FDA-Public Use
  Company Number: 2004CG00029

PATIENT
  Age: 75 Year
  Sex: Male

DRUGS (5)
  1. MOPRAL [Suspect]
     Dosage: 20 MG DAILY PO
     Route: 048
     Dates: start: 20030923, end: 20031009
  2. ZOCOR [Suspect]
     Dosage: 1 DF DAILY PO
     Route: 048
     Dates: start: 20030925, end: 20031009
  3. DI-ANTALVIC [Suspect]
     Dosage: 2 DF TID PO
     Route: 048
     Dates: start: 20031001, end: 20031009
  4. TRIATEC [Suspect]
     Dosage: 1 DF DAILY PO
     Route: 048
     Dates: start: 20031001, end: 20031009
  5. SECTRAL [Suspect]
     Dosage: 100 MG DAILY PO
     Route: 048
     Dates: start: 20030924, end: 20031009

REACTIONS (3)
  - CHOLESTASIS [None]
  - CYTOLYTIC HEPATITIS [None]
  - LIPASE INCREASED [None]
